FAERS Safety Report 5405790-7 (Version None)
Quarter: 2007Q3

REPORT INFORMATION
  Report Type: 
  Country: None (occurrence: None)
  Receive Date: 20070806
  Receipt Date: 20070803
  Transmission Date: 20080115
  Serious: Yes (Other)
  Sender: FDA-Public Use
  Company Number: CH-JNJFOC-20070206356

PATIENT
  Sex: Female
  Weight: 70 kg

DRUGS (8)
  1. TOPAMAX [Suspect]
     Indication: PAIN
     Dosage: GIVEN IN THE 17TH WEEK OF PREGNANCY; 9 GESTATIONAL WEEKS EXPOSURE
     Route: 048
  2. MORPHINE [Concomitant]
     Indication: PAIN
     Dosage: 20 MG 3-5 TIMES DAILY, AS NEEDED; 0-36 GESTATIONAL WEEKS EXPOSURE
     Route: 048
  3. MORPHINE [Concomitant]
     Dosage: 0-36 GESTATIONAL WEEKS EXPOSURE
     Route: 037
  4. CLONIDINE [Concomitant]
     Indication: DRUG USE FOR UNKNOWN INDICATION
     Dosage: 0-36 GESTATIONAL WEEKS EXPOSURE
     Route: 037
  5. ZOPICION [Concomitant]
     Indication: SLEEP DISORDER
     Dosage: 7.5 MG ONCE DAILY, AS NEEDED; 8 GESTATIONAL WEEKS EXPOSURE
     Route: 048
  6. PAROXETINE [Concomitant]
     Indication: PAIN
     Dosage: 0-36 GESTATIONAL WEEKS EXPOSURE
     Route: 048
  7. DIAZEPAM [Concomitant]
     Indication: SLEEP DISORDER
     Dosage: 2.5 MG ONCE DAILY, AS NEEDED; 20-36 GESTATIONAL WEEKS EXPOSURE
     Route: 048
  8. METRONIDAZOLE [Concomitant]
     Indication: PAIN
     Dosage: 30-36 GESTATIONAL WEEKS EXPOSURE
     Route: 048

REACTIONS (3)
  - DRUG EXPOSURE DURING PREGNANCY [None]
  - PRE-ECLAMPSIA [None]
  - PREMATURE BABY [None]
